FAERS Safety Report 7381358-0 (Version None)
Quarter: 2011Q1

REPORT INFORMATION
  Report Type: 
  Country: None (occurrence: None)
  Receive Date: 20110321
  Receipt Date: 20110308
  Transmission Date: 20110831
  Serious: Yes (Death, Hospitalization, Other)
  Sender: FDA-Public Use
  Company Number: 1000005637

PATIENT
  Age: 83 Year
  Sex: Male
  Weight: 74 kg

DRUGS (10)
  1. ANTICHOLINERGICS (ANTICHOLINERGICS) [Concomitant]
  2. FUROSEMIDE [Concomitant]
  3. SYMPATHOMIMETRICS (SYMPATHOMIMETICS) [Concomitant]
  4. BROCHODILATORS (BRONCHODILATORS) [Concomitant]
  5. CHLORPROMAZINE [Concomitant]
  6. BISOPROLOL (BISOPROLOL) [Concomitant]
  7. ACETYLSALICYLIC ACID (ACETYLSALICYLIC ACID) [Concomitant]
  8. CITALOPRAM (CITALOPRAM HYDROBROMIDE) (TABLETS) [Suspect]
     Indication: DEPRESSION
     Dosage: 20 MG (20 MG, 1 IN 1 D), ORAL
     Route: 048
     Dates: start: 20090319, end: 20090322
  9. INSULIN (INSULIN) [Concomitant]
  10. STEROIDS (STEROIDS) [Concomitant]

REACTIONS (10)
  - HEPATOTOXICITY [None]
  - GENERAL PHYSICAL HEALTH DETERIORATION [None]
  - ALANINE AMINOTRANSFERASE INCREASED [None]
  - OFF LABEL USE [None]
  - DECREASED APPETITE [None]
  - BLOOD LACTATE DEHYDROGENASE INCREASED [None]
  - GAMMA-GLUTAMYLTRANSFERASE INCREASED [None]
  - BLOOD ALKALINE PHOSPHATASE INCREASED [None]
  - BRONCHOPNEUMONIA [None]
  - ASPARTATE AMINOTRANSFERASE INCREASED [None]
